FAERS Safety Report 5730328-4 (Version None)
Quarter: 2008Q2

REPORT INFORMATION
  Report Type: 
  Country: None (occurrence: None)
  Receive Date: 20080505
  Receipt Date: 20080505
  Transmission Date: 20081010
  Serious: Yes (Hospitalization)
  Sender: FDA-Public Use
  Company Number: None

PATIENT
  Age: 27 Year
  Sex: Female

DRUGS (1)
  1. AZATHIOPRINE [Suspect]
     Indication: SYSTEMIC LUPUS ERYTHEMATOSUS
     Dosage: 100MG DAILY PO
     Route: 048
     Dates: start: 20071201, end: 20080206

REACTIONS (7)
  - CHILLS [None]
  - DRUG INTERACTION [None]
  - FATIGUE [None]
  - GINGIVAL BLEEDING [None]
  - INCORRECT DOSE ADMINISTERED [None]
  - ORAL PAIN [None]
  - PANCYTOPENIA [None]
